FAERS Safety Report 16340940 (Version 2)
Quarter: 2019Q3

REPORT INFORMATION
  Report Type: Other
  Country: IT (occurrence: IT)
  Receive Date: 20190522
  Receipt Date: 20190709
  Transmission Date: 20191004
  Serious: Yes (Life-Threatening)
  Sender: FDA-Public Use
  Company Number: IT-CELLTRION INC.-2018IT024087

PATIENT

DRUGS (4)
  1. TRIMETON [Concomitant]
     Active Substance: CHLORPHENIRAMINE MALEATE
     Dosage: 1 DF
     Route: 042
  2. TRUXIMA [Suspect]
     Active Substance: RITUXIMAB-ABBS
     Indication: RHEUMATOID ARTHRITIS
     Dosage: 1000 MG, 1 CYCLE
     Route: 042
     Dates: start: 20180507, end: 20181105
  3. SALMETEROL SANDOZ [Concomitant]
     Dosage: 0.5 DF
  4. TACHIPIRINA [Concomitant]
     Active Substance: ACETAMINOPHEN
     Dosage: 1000 DF

REACTIONS (4)
  - Urticaria [Recovered/Resolved]
  - Loss of consciousness [Recovered/Resolved]
  - Blood pressure decreased [Recovered/Resolved]
  - Product substitution issue [Recovered/Resolved]

NARRATIVE: CASE EVENT DATE: 20181105
